FAERS Safety Report 9590727 (Version 1)
Quarter: 2013Q4

REPORT INFORMATION
  Report Type: Spontaneous
  Country: US (occurrence: US)
  Receive Date: 20131003
  Receipt Date: 20131003
  Transmission Date: 20140711
  Serious: No
  Sender: FDA-Public Use
  Company Number: US-AMGEN-USASP2012075928

PATIENT
  Age: 57 Year
  Sex: Female
  Weight: 77.1 kg

DRUGS (10)
  1. ENBREL [Suspect]
     Indication: PRODUCT USED FOR UNKNOWN INDICATION
     Dosage: 50 MG, QWK
     Route: 058
  2. XANAX [Concomitant]
     Dosage: 0.25 MG, UNK
  3. METHOTREXATE [Concomitant]
     Dosage: 2.5 MG, UNK
  4. VERAPAMIL [Concomitant]
     Dosage: 180 MG, UNK
  5. PRILOSEC                           /00661201/ [Concomitant]
     Dosage: 40 MG, UNK
  6. PROZAC [Concomitant]
     Dosage: 10 MG, UNK
  7. MULTIVITAMIN                       /00097801/ [Concomitant]
     Dosage: UNK
  8. MAXZIDE [Concomitant]
     Dosage: 25 UNK, UNK
  9. HYDROCODONE [Concomitant]
     Dosage: UNK
  10. POTASSIUM GUAIACOLSULFONATE [Concomitant]
     Dosage: UNK

REACTIONS (2)
  - Rectal ulcer [Unknown]
  - Rectal polyp [Unknown]
